FAERS Safety Report 23192392 (Version 1)
Quarter: 2023Q4

REPORT INFORMATION
  Report Type: Spontaneous
  Country: US (occurrence: None)
  Receive Date: 20231115
  Receipt Date: 20231115
  Transmission Date: 20240110
  Serious: Yes (Other)
  Sender: FDA-Public Use
  Company Number: None

PATIENT
  Age: 52 Year
  Sex: Female
  Weight: 98.43 kg

DRUGS (3)
  1. PERSERIS [Suspect]
     Active Substance: RISPERIDONE
     Indication: Schizoaffective disorder depressive type
     Dosage: FREQUENCY : MONTHLY;?
     Route: 058
     Dates: start: 20230907
  2. PERSERIS [Suspect]
     Active Substance: RISPERIDONE
     Indication: Personality disorder
  3. PERSERIS [Suspect]
     Active Substance: RISPERIDONE
     Indication: Dissociative identity disorder

REACTIONS (4)
  - Blister [None]
  - Infusion site vesicles [None]
  - Infusion site erythema [None]
  - Infusion site swelling [None]

NARRATIVE: CASE EVENT DATE: 20231103
